FAERS Safety Report 9089190 (Version 1)
Quarter: 2013Q1

REPORT INFORMATION
  Report Type: Spontaneous
  Country: US (occurrence: US)
  Receive Date: 20130131
  Receipt Date: 20130131
  Transmission Date: 20140127
  Serious: Yes (Other)
  Sender: FDA-Public Use
  Company Number: US-PFIZER INC-2013030514

PATIENT
  Age: 17 Year
  Sex: Female
  Weight: 56.69 kg

DRUGS (6)
  1. ZITHROMAX [Suspect]
     Indication: SINUSITIS
     Dosage: UNK
     Dates: start: 20121216, end: 20121220
  2. ZITHROMAX [Suspect]
     Indication: THROAT TIGHTNESS
     Dosage: UNK
     Dates: start: 20130103, end: 20130107
  3. CLINDAMYCIN [Suspect]
     Indication: THROAT TIGHTNESS
     Dosage: 300 MG, UNK
     Dates: start: 20130107, end: 201301
  4. PREDNISONE [Suspect]
     Indication: RASH
     Dosage: UNK
     Dates: start: 20130112, end: 201301
  5. LEVONORGESTREL W/ETHINYLESTRADIOL [Concomitant]
     Indication: CONTRACEPTION
     Dosage: UNK
  6. VITAMIN D3 [Concomitant]
     Dosage: UNK

REACTIONS (6)
  - Drug ineffective [Unknown]
  - Shock [Unknown]
  - Throat tightness [Unknown]
  - Rash [Unknown]
  - Pyrexia [Unknown]
  - Swelling face [Unknown]
